FAERS Safety Report 21289975 (Version 3)
Quarter: 2023Q1

REPORT INFORMATION
  Report Type: Spontaneous
  Country: IN (occurrence: IN)
  Receive Date: 20220902
  Receipt Date: 20230215
  Transmission Date: 20230417
  Serious: Yes (Other)
  Sender: FDA-Public Use
  Company Number: IN-PFIZER INC-2020346608

PATIENT
  Age: 62 Year
  Sex: Male

DRUGS (17)
  1. SUTENT [Suspect]
     Active Substance: SUNITINIB MALATE
     Indication: Metastatic renal cell carcinoma
     Dosage: (DAILY (1-0-0) (2 WEEKS ON, ONE WEEK OFF))
     Route: 048
     Dates: start: 20200808, end: 20200822
  2. SUTENT [Suspect]
     Active Substance: SUNITINIB MALATE
     Dosage: (DAILY (1-0-0) (2 WEEKS ON, ONE WEEK OFF))
     Route: 048
     Dates: start: 20200829
  3. SUTENT [Suspect]
     Active Substance: SUNITINIB MALATE
     Dosage: 50 MG, 1X/DAY
     Route: 048
     Dates: start: 20200916
  4. SUTENT [Suspect]
     Active Substance: SUNITINIB MALATE
     Dosage: 37.5 MG, DAILY
     Dates: start: 20220204, end: 20220218
  5. SUTENT [Suspect]
     Active Substance: SUNITINIB MALATE
     Dosage: 37.5 MG, DAILY (12.5 MG, 3-0-0)
     Dates: start: 20220703, end: 20220716
  6. SUTENT [Suspect]
     Active Substance: SUNITINIB MALATE
     Dosage: 37.5 MG, DAILY (12.5 MG, 3-0-0, AFTER FOOD)
     Route: 048
  7. MEGESTROL [Suspect]
     Active Substance: MEGESTROL
     Dosage: UNK
  8. METOCLOPRAMIDE HYDROCHLORIDE [Concomitant]
     Active Substance: METOCLOPRAMIDE HYDROCHLORIDE
     Indication: Nausea
     Dosage: UNK UNK, 1X/DAY (1-0-0) 1/2HR BEFORE BREAKFAST
  9. METOCLOPRAMIDE HYDROCHLORIDE [Concomitant]
     Active Substance: METOCLOPRAMIDE HYDROCHLORIDE
     Indication: Vomiting
     Dosage: 10 MG, 1-0-0, BEFORE FOOD
  10. PAN [Concomitant]
     Dosage: 40 MG, 1X/DAY (1/2 HR AF BREAKFAST)
  11. NEUPRO [Concomitant]
     Active Substance: ROTIGOTINE
     Dosage: 40 MG, 1X/DAY (1-0-0) 1/2HR B F
  12. ESOMEPRAZOLE SODIUM [Concomitant]
     Active Substance: ESOMEPRAZOLE SODIUM
     Dosage: BEFORE FOOD-DAILY
  13. ZOLPIDEM TARTRATE [Concomitant]
     Active Substance: ZOLPIDEM TARTRATE
     Dosage: AFTER FOOD-DAILY
  14. DROTIN PLUS [Concomitant]
     Indication: Abdominal pain
     Dosage: AFTER FOOD
  15. CREMAFFIN [Concomitant]
     Dosage: BED TIME-DAILY
  16. CREMAFFIN [Concomitant]
     Dosage: 5 ML, 0-0-1, BED TIME - DAILY
  17. APTIVATE [Concomitant]
     Dosage: 1-0-1, AFTER FOOD-DAILY

REACTIONS (28)
  - Platelet count decreased [Unknown]
  - Cholecystitis acute [Unknown]
  - Cholecystitis infective [Unknown]
  - Scrotal cellulitis [Unknown]
  - Intestinal obstruction [Unknown]
  - Diarrhoea [Unknown]
  - Nausea [Unknown]
  - Mucosal inflammation [Unknown]
  - Abdominal pain [Unknown]
  - Constipation [Unknown]
  - Palmar-plantar erythrodysaesthesia syndrome [Unknown]
  - Skin discolouration [Unknown]
  - Dry skin [Unknown]
  - Hair colour changes [Unknown]
  - Dyspnoea [Unknown]
  - Decreased appetite [Unknown]
  - Pallor [Unknown]
  - Food allergy [Unknown]
  - COVID-19 [Recovered/Resolved]
  - Blood urine present [Unknown]
  - Gastritis [Unknown]
  - Haemoglobin decreased [Unknown]
  - Neutrophil count decreased [Unknown]
  - White blood cell count decreased [Unknown]
  - Weight increased [Unknown]
  - Blood creatine increased [Unknown]
  - Protein total decreased [Unknown]
  - Blood albumin decreased [Unknown]

NARRATIVE: CASE EVENT DATE: 20200101
